FAERS Safety Report 8489131-7 (Version None)
Quarter: 2012Q3

REPORT INFORMATION
  Report Type: 
  Country: None (occurrence: None)
  Receive Date: 20120705
  Receipt Date: 20120703
  Transmission Date: 20120928
  Serious: Yes (Other)
  Sender: FDA-Public Use
  Company Number: PHFR2012GB003671

PATIENT
  Sex: Male

DRUGS (1)
  1. CLOZARIL [Suspect]
     Indication: SCHIZOPHRENIA
     Route: 048
     Dates: start: 20120430, end: 20120622

REACTIONS (6)
  - FALL [None]
  - MYOCLONUS [None]
  - HAEMOGLOBIN DECREASED [None]
  - ENURESIS [None]
  - EPISTAXIS [None]
  - TREMOR [None]
